FAERS Safety Report 15662013 (Version 5)
Quarter: 2019Q1

REPORT INFORMATION
  Report Type: Spontaneous
  Country: GR (occurrence: GR)
  Receive Date: 20181127
  Receipt Date: 20190117
  Transmission Date: 20190417
  Serious: Yes (Death, Other)
  Sender: FDA-Public Use
  Company Number: PHHY2018GR167083

PATIENT
  Age: 62 Year
  Sex: Female

DRUGS (2)
  1. VORICONAZOLE. [Suspect]
     Active Substance: VORICONAZOLE
     Indication: DIFFUSE LARGE B-CELL LYMPHOMA
     Dosage: UNK
     Route: 065
  2. IBRUTINIB [Interacting]
     Active Substance: IBRUTINIB
     Indication: DIFFUSE LARGE B-CELL LYMPHOMA
     Dosage: 140 MG, QD
     Route: 065

REACTIONS (11)
  - Leukopenia [Fatal]
  - Off label use [Fatal]
  - Respiratory tract infection [Fatal]
  - Drug interaction [Fatal]
  - Lymphadenopathy [Fatal]
  - Dehydration [Unknown]
  - Tuberculosis [Fatal]
  - Product use in unapproved indication [Fatal]
  - Gastrointestinal disorder [Unknown]
  - Diarrhoea [Fatal]
  - Vomiting [Fatal]
